FAERS Safety Report 17363166 (Version 2)
Quarter: 2020Q3

REPORT INFORMATION
  Report Type: Spontaneous
  Country: PT (occurrence: PT)
  Receive Date: 20200203
  Receipt Date: 20200720
  Transmission Date: 20201102
  Serious: No
  Sender: FDA-Public Use
  Company Number: PT-ALSI-202000027

PATIENT
  Age: 88 Year
  Sex: Male

DRUGS (1)
  1. OXYGEN. [Suspect]
     Active Substance: OXYGEN
     Indication: CARDIO-RESPIRATORY ARREST
     Route: 055
     Dates: start: 20200113, end: 20200113

REACTIONS (4)
  - Underdose [Unknown]
  - Device leakage [Unknown]
  - No adverse event [Unknown]
  - Product packaging quantity issue [Unknown]
